FAERS Safety Report 4612270-5 (Version None)
Quarter: 2005Q1

REPORT INFORMATION
  Report Type: 
  Country: None (occurrence: None)
  Receive Date: 20050316
  Receipt Date: 20050228
  Transmission Date: 20050727
  Serious: Yes (Hospitalization)
  Sender: FDA-Public Use
  Company Number: USA040465841

PATIENT
  Age: 61 Year
  Sex: Female
  Weight: 45 kg

DRUGS (1)
  1. FORTEO [Suspect]
     Indication: OSTEOPOROSIS
     Dates: start: 20040423

REACTIONS (21)
  - ABDOMINAL DISCOMFORT [None]
  - ANTINUCLEAR ANTIBODY POSITIVE [None]
  - BLOOD ALKALINE PHOSPHATASE INCREASED [None]
  - BLOOD AMYLASE INCREASED [None]
  - BLOOD CALCIUM INCREASED [None]
  - CONDITION AGGRAVATED [None]
  - DIZZINESS [None]
  - DRY MOUTH [None]
  - EOSINOPHIL COUNT DECREASED [None]
  - HAEMOGLOBIN DECREASED [None]
  - HEART RATE INCREASED [None]
  - INTERVERTEBRAL DISC DEGENERATION [None]
  - JOINT RANGE OF MOTION DECREASED [None]
  - LYMPHADENOPATHY [None]
  - METABOLIC DISORDER [None]
  - NERVE COMPRESSION [None]
  - PAIN [None]
  - PCO2 INCREASED [None]
  - PHARMACEUTICAL PRODUCT COMPLAINT [None]
  - VEIN DISORDER [None]
  - WHITE BLOOD CELL COUNT DECREASED [None]
